FAERS Safety Report 9433323 (Version 1)
Quarter: 2013Q3

REPORT INFORMATION
  Report Type: Spontaneous
  Country: US (occurrence: US)
  Receive Date: 20130731
  Receipt Date: 20130731
  Transmission Date: 20140515
  Serious: Yes (Hospitalization, Other)
  Sender: FDA-Public Use
  Company Number: US-BAXTER-2013BAX028370

PATIENT
  Age: 53 Year
  Sex: Male

DRUGS (1)
  1. DIANEAL LOW CALCIUM [Suspect]
     Indication: PERITONEAL DIALYSIS
     Route: 033

REACTIONS (4)
  - Anaemia [Recovered/Resolved]
  - Haemorrhoids [Recovered/Resolved]
  - Haemorrhage [Recovering/Resolving]
  - Full blood count decreased [Recovering/Resolving]
